FAERS Safety Report 4452404-9 (Version None)
Quarter: 2004Q3

REPORT INFORMATION
  Report Type: 
  Country: None (occurrence: None)
  Receive Date: 20040915
  Receipt Date: 20040903
  Transmission Date: 20050211
  Serious: Yes (Hospitalization)
  Sender: FDA-Public Use
  Company Number: 2004058455

PATIENT
  Age: 72 Year
  Sex: Female

DRUGS (6)
  1. MINOXIDIL [Suspect]
     Indication: ALOPECIA
     Dosage: TOPICAL
     Route: 061
     Dates: start: 20040608, end: 20040618
  2. TROMCARDIN (ASPARTATE POTASSIUM, MAGNESIUM ASPARTATE) [Concomitant]
  3. BISOPROLOL FUMARATE [Concomitant]
  4. REPAGLINIDE (REPAGLINIDE) [Concomitant]
  5. METFORMIN HCL [Concomitant]
  6. ZINC DL-ASPARTATE (ZINC DL-ASPARTATE) [Concomitant]

REACTIONS (2)
  - ANGIONEUROTIC OEDEMA [None]
  - ECZEMA [None]
